FAERS Safety Report 12002900 (Version 2)
Quarter: 2016Q1

REPORT INFORMATION
  Report Type: Report from Study
  Country: BR (occurrence: BR)
  Receive Date: 20160204
  Receipt Date: 20160314
  Transmission Date: 20160526
  Serious: Yes (Other)
  Sender: FDA-Public Use
  Company Number: PHHY2016BR014523

PATIENT
  Sex: Male
  Weight: 83 kg

DRUGS (1)
  1. EXJADE [Suspect]
     Active Substance: DEFERASIROX
     Indication: THALASSAEMIA BETA
     Dosage: 5 MG/KG, QD (500 MG ONCE DAILY)
     Route: 048

REACTIONS (10)
  - Pain in extremity [Unknown]
  - Diarrhoea [Unknown]
  - Procedural complication [Unknown]
  - Wound complication [Unknown]
  - Gait disturbance [Unknown]
  - Wound [Unknown]
  - Wound haemorrhage [Unknown]
  - Retching [Unknown]
  - Impaired healing [Unknown]
  - Abdominal pain upper [Unknown]
